FAERS Safety Report 8937211 (Version 1)
Quarter: 2012Q4

REPORT INFORMATION
  Report Type: Spontaneous
  Country: US (occurrence: None)
  Receive Date: 20121128
  Receipt Date: 20121128
  Transmission Date: 20130627
  Serious: Yes (Death)
  Sender: FDA-Public Use
  Company Number: None

PATIENT
  Age: 55 Year
  Sex: Male
  Weight: 90.72 kg

DRUGS (1)
  1. CHANTIX [Suspect]
     Indication: CESSATION OF SMOKING
     Dates: start: 20080115, end: 20081126

REACTIONS (2)
  - Suicidal ideation [None]
  - Completed suicide [None]
